FAERS Safety Report 10436341 (Version 1)
Quarter: 2014Q3

REPORT INFORMATION
  Report Type: Spontaneous
  Country: PL (occurrence: PL)
  Receive Date: 20140908
  Receipt Date: 20140908
  Transmission Date: 20150326
  Serious: Yes (Hospitalization, Other)
  Sender: FDA-Public Use
  Company Number: PHHY2014PL109524

PATIENT
  Age: 53 Year
  Sex: Male

DRUGS (13)
  1. INDAPAMIDE SR [Concomitant]
     Dosage: 1.5 MG, UNK
  2. BICALUTAMIDE. [Suspect]
     Active Substance: BICALUTAMIDE
     Indication: PROSTATE CANCER METASTATIC
     Dosage: 50 MG, TID
  3. TRIPTORELIN [Suspect]
     Active Substance: TRIPTORELIN
     Indication: PROSTATE CANCER METASTATIC
     Dosage: 11.25 MG, EVERY 6 WEEKS
     Dates: start: 201011, end: 201111
  4. CARVEDILOL. [Concomitant]
     Active Substance: CARVEDILOL
     Dosage: 25 MG, UNK
  5. INSULIN [Concomitant]
     Active Substance: INSULIN NOS
     Indication: DIABETES MELLITUS
     Dosage: 10 U, UNK
  6. GOSERELIN [Suspect]
     Active Substance: GOSERELIN
     Indication: PROSTATE CANCER METASTATIC
     Dosage: 10.8 MG, UNK
  7. RAMIPRIL. [Concomitant]
     Active Substance: RAMIPRIL
     Dosage: 5 MG, UNK
  8. ACENOCOUMAROL [Concomitant]
     Active Substance: ACENOCOUMAROL
     Indication: ANTICOAGULANT THERAPY
  9. FLUTAMIDE. [Suspect]
     Active Substance: FLUTAMIDE
     Indication: PROSTATE CANCER METASTATIC
     Dosage: 250 MG, TID
     Dates: start: 201011, end: 201111
  10. SIMVASTATIN. [Suspect]
     Active Substance: SIMVASTATIN
     Indication: HYPERCHOLESTEROLAEMIA
     Dosage: 20 MG, DAILY
  11. PAMIDRONATE DISODIUM. [Suspect]
     Active Substance: PAMIDRONATE DISODIUM
     Indication: PROSTATE CANCER METASTATIC
     Dosage: 90 MG, MONTHLY
     Route: 042
  12. GLICLAZID MR [Concomitant]
     Indication: DIABETES MELLITUS
     Dosage: 30 MG, DAILY
  13. RADIOTHERAPY [Concomitant]
     Active Substance: RADIATION THERAPY
     Indication: PROSTATE CANCER
     Dosage: 20 GY, IN 5 FRACTIONS

REACTIONS (5)
  - Pustular psoriasis [Recovered/Resolved]
  - Psoriasis [Recovering/Resolving]
  - Skin plaque [Recovered/Resolved]
  - Rash pustular [Recovered/Resolved]
  - Erythema [Recovered/Resolved]

NARRATIVE: CASE EVENT DATE: 201112
